FAERS Safety Report 12753933 (Version 1)
Quarter: 2016Q3

REPORT INFORMATION
  Report Type: Spontaneous
  Country: FR (occurrence: FR)
  Receive Date: 20160916
  Receipt Date: 20160916
  Transmission Date: 20161109
  Serious: Yes (Death, Hospitalization, Other)
  Sender: FDA-Public Use
  Company Number: FR-JNJFOC-20160911743

PATIENT
  Age: 87 Year
  Sex: Male

DRUGS (12)
  1. MOVICOL [Concomitant]
     Active Substance: POLYETHYLENE GLYCOL 3350\POTASSIUM CHLORIDE\SODIUM BICARBONATE\SODIUM CHLORIDE
     Route: 065
  2. DIFFU K [Suspect]
     Active Substance: POTASSIUM CHLORIDE
     Indication: HYPOKALAEMIA
     Route: 048
  3. COUMADINE [Concomitant]
     Active Substance: WARFARIN SODIUM
     Indication: AORTIC STENOSIS
     Route: 048
     Dates: end: 20140305
  4. INIPOMP [Concomitant]
     Active Substance: PANTOPRAZOLE SODIUM
     Route: 065
  5. LASILIX [Concomitant]
     Active Substance: FUROSEMIDE
     Route: 065
  6. OXYNORMORO [Suspect]
     Active Substance: OXYCODONE
     Indication: PAIN
     Dosage: STRENGTH 5 MG
     Route: 048
     Dates: start: 20140301, end: 20140306
  7. SERESTA [Suspect]
     Active Substance: OXAZEPAM
     Indication: COGNITIVE DISORDER
     Route: 048
     Dates: end: 20140306
  8. DOLIPRANE [Concomitant]
     Active Substance: ACETAMINOPHEN
     Route: 065
  9. DUROGESIC [Suspect]
     Active Substance: FENTANYL
     Indication: PAIN
     Route: 062
     Dates: start: 20140305, end: 20140306
  10. PYOSTACINE [Concomitant]
     Active Substance: PRISTINAMYCIN
     Indication: ERYSIPELAS
     Route: 048
     Dates: start: 20140301, end: 20140306
  11. FUMAFER [Concomitant]
     Active Substance: FERROUS FUMARATE
     Route: 065
  12. TRIATEC [Concomitant]
     Active Substance: RAMIPRIL
     Route: 065

REACTIONS (5)
  - Coma [Fatal]
  - Cyanosis [Fatal]
  - Hyperkalaemia [Fatal]
  - Somnolence [Fatal]
  - Torsade de pointes [Fatal]

NARRATIVE: CASE EVENT DATE: 20140306
